FAERS Safety Report 7443229-0 (Version None)
Quarter: 2011Q2

REPORT INFORMATION
  Report Type: 
  Country: None (occurrence: None)
  Receive Date: 20110428
  Receipt Date: 20110419
  Transmission Date: 20111010
  Serious: Yes (Hospitalization)
  Sender: FDA-Public Use
  Company Number: B0714882A

PATIENT
  Age: 13 Year
  Sex: Female

DRUGS (3)
  1. PAXIL [Suspect]
     Indication: DEPRESSIVE SYMPTOM
     Dosage: 10MG PER DAY
     Route: 048
     Dates: start: 20110415, end: 20110418
  2. LEXOTAN [Concomitant]
     Route: 048
  3. UNKNOWN DRUG [Concomitant]
     Route: 048

REACTIONS (1)
  - INTENTIONAL SELF-INJURY [None]
